FAERS Safety Report 17109853 (Version 1)
Quarter: 2019Q4

REPORT INFORMATION
  Report Type: Spontaneous
  Country: US (occurrence: US)
  Receive Date: 20191204
  Receipt Date: 20191204
  Transmission Date: 20200122
  Serious: Yes (Life-Threatening, Hospitalization, Other)
  Sender: FDA-Public Use
  Company Number: US-HIKMA PHARMACEUTICALS USA INC.-US-H14001-19-04470

PATIENT
  Age: 20 Year
  Sex: Male

DRUGS (9)
  1. MYCOPHENOLATE MOFETIL. [Concomitant]
     Active Substance: MYCOPHENOLATE MOFETIL
     Indication: AUTOIMMUNE ENCEPHALOPATHY
     Route: 065
     Dates: start: 2017
  2. VALPROIC ACID. [Suspect]
     Active Substance: VALPROIC ACID
     Indication: STATUS EPILEPTICUS
     Route: 065
     Dates: start: 201710, end: 201712
  3. IMMUNOGLOBULIN [Concomitant]
     Indication: AUTOIMMUNE ENCEPHALOPATHY
     Route: 065
     Dates: start: 2017
  4. LACOSAMIDE. [Concomitant]
     Active Substance: LACOSAMIDE
     Indication: STATUS EPILEPTICUS
     Route: 065
     Dates: start: 2017
  5. PHENYTOIN. [Concomitant]
     Active Substance: PHENYTOIN
     Indication: STATUS EPILEPTICUS
     Route: 065
     Dates: start: 2017
  6. CYCLOPHOSPHAMIDE. [Concomitant]
     Active Substance: CYCLOPHOSPHAMIDE
     Indication: AUTOIMMUNE ENCEPHALOPATHY
     Route: 065
     Dates: start: 2017
  7. VALPROIC ACID. [Suspect]
     Active Substance: VALPROIC ACID
     Route: 065
     Dates: start: 201712, end: 201801
  8. LEVETIRACETAM. [Concomitant]
     Active Substance: LEVETIRACETAM
     Indication: STATUS EPILEPTICUS
     Route: 065
     Dates: start: 2017
  9. RITUXIMAB. [Concomitant]
     Active Substance: RITUXIMAB
     Indication: AUTOIMMUNE ENCEPHALOPATHY
     Route: 065
     Dates: start: 2017

REACTIONS (5)
  - Hepatic steatosis [Recovered/Resolved]
  - Hepatic cirrhosis [Recovered/Resolved]
  - Drug-induced liver injury [Recovered/Resolved]
  - Hepatic necrosis [Recovered/Resolved]
  - Acute hepatic failure [Recovered/Resolved]

NARRATIVE: CASE EVENT DATE: 201801
